FAERS Safety Report 5856424-9 (Version None)
Quarter: 2008Q3

REPORT INFORMATION
  Report Type: 
  Country: None (occurrence: None)
  Receive Date: 20080821
  Receipt Date: 20080812
  Transmission Date: 20090109
  Serious: Yes (Other)
  Sender: FDA-Public Use
  Company Number: 2008-01916

PATIENT
  Age: 55 Year
  Sex: Male
  Weight: 103 kg

DRUGS (4)
  1. VELCADE [Suspect]
     Indication: MULTIPLE MYELOMA
     Dosage: 2.6 MG, INTRAVENOUS
     Route: 042
     Dates: start: 20080422, end: 20080523
  2. VELCADE [Suspect]
     Indication: MULTIPLE MYELOMA
     Dosage: 2.6 MG, INTRAVENOUS
     Route: 042
     Dates: start: 20080613
  3. GRANISETRON  HCL [Concomitant]
  4. DEXAMETHASONE SODIUM PHOSPHATE [Concomitant]

REACTIONS (3)
  - CONFUSIONAL STATE [None]
  - HYPOTHERMIA [None]
  - INCOHERENT [None]
